FAERS Safety Report 8169379-1 (Version None)
Quarter: 2012Q1

REPORT INFORMATION
  Report Type: 
  Country: None (occurrence: None)
  Receive Date: 20120222
  Receipt Date: 20120214
  Transmission Date: 20120608
  Serious: Yes (Other)
  Sender: FDA-Public Use
  Company Number: 2012SP008501

PATIENT
  Age: 66 Year
  Sex: 0
  Weight: 63 kg

DRUGS (6)
  1. ALLOPURINOL [Concomitant]
  2. REBETOL [Suspect]
     Indication: CHRONIC HEPATITIS
     Dosage: 400 MG;BID;PO
     Route: 048
     Dates: start: 20101112, end: 20110309
  3. CALBLOCK [Concomitant]
  4. INTERFERON BETA NOS [Suspect]
     Indication: CHRONIC HEPATITIS
     Dosage: 6 MIU;QD;INDRP, 6 MIU, TIW; INDRP
     Route: 041
     Dates: start: 20101206, end: 20110309
  5. INTERFERON BETA NOS [Suspect]
     Indication: CHRONIC HEPATITIS
     Dosage: 6 MIU;QD;INDRP, 6 MIU, TIW; INDRP
     Route: 041
     Dates: start: 20101112, end: 20101204
  6. COVERSYL /00790702/ [Concomitant]

REACTIONS (1)
  - LIVER FUNCTION TEST ABNORMAL [None]
